FAERS Safety Report 19933881 (Version 2)
Quarter: 2021Q4

REPORT INFORMATION
  Report Type: Spontaneous
  Country: CN (occurrence: CN)
  Receive Date: 20211008
  Receipt Date: 20211014
  Transmission Date: 20220303
  Serious: Yes (Other)
  Sender: FDA-Public Use
  Company Number: CN-PFIZER INC-202101318857

PATIENT
  Age: 46 Year
  Sex: Male

DRUGS (1)
  1. TOFACITINIB CITRATE [Suspect]
     Active Substance: TOFACITINIB CITRATE
     Indication: Dermatitis atopic
     Dosage: 5 MG, 2X/DAY

REACTIONS (4)
  - Xerophthalmia [Unknown]
  - Somnolence [Unknown]
  - Therapeutic response unexpected [Recovering/Resolving]
  - Off label use [Unknown]
